FAERS Safety Report 9602806 (Version 1)
Quarter: 2013Q4

REPORT INFORMATION
  Report Type: Spontaneous
  Country: US (occurrence: US)
  Receive Date: 20131007
  Receipt Date: 20131007
  Transmission Date: 20140711
  Serious: No
  Sender: FDA-Public Use
  Company Number: US-BAYER-2013-117034

PATIENT
  Age: 41 Year
  Sex: Female

DRUGS (2)
  1. FINACEA [Suspect]
     Indication: ROSACEA
     Dosage: UNK
     Dates: start: 201302, end: 201308
  2. METROGEL [Concomitant]
     Dosage: UNK
     Dates: end: 201308

REACTIONS (2)
  - Lymphadenopathy [None]
  - Ear pruritus [Recovered/Resolved]
